FAERS Safety Report 4741513-2 (Version None)
Quarter: 2005Q3

REPORT INFORMATION
  Report Type: 
  Country: None (occurrence: None)
  Receive Date: 20050808
  Receipt Date: 20050729
  Transmission Date: 20060218
  Serious: Yes (Hospitalization)
  Sender: FDA-Public Use
  Company Number: 11947

PATIENT
  Age: 75 Year
  Sex: Male

DRUGS (6)
  1. AMIODARONE [Suspect]
     Indication: ATRIAL FIBRILLATION
     Dosage: 200 MG
     Route: 048
     Dates: end: 20050215
  2. SIMVASTATIN [Concomitant]
  3. PERINDOPRIL [Concomitant]
  4. THYROXINE [Concomitant]
  5. WARFARIN [Concomitant]
  6. FUROSEMIDE [Concomitant]

REACTIONS (1)
  - LIVER DISORDER [None]
